FAERS Safety Report 23516203 (Version 1)
Quarter: 2024Q1

REPORT INFORMATION
  Report Type: Spontaneous
  Country: SE (occurrence: SE)
  Receive Date: 20240213
  Receipt Date: 20240213
  Transmission Date: 20240409
  Serious: Yes (Death)
  Sender: FDA-Public Use
  Company Number: SE-BoehringerIngelheim-2024-BI-004438

PATIENT
  Age: 57 Year
  Sex: Male

DRUGS (1)
  1. JARDIANCE [Suspect]
     Active Substance: EMPAGLIFLOZIN
     Indication: Diabetes mellitus

REACTIONS (3)
  - Death [Fatal]
  - Balanoposthitis [Unknown]
  - Fungal infection [Unknown]

NARRATIVE: CASE EVENT DATE: 20240101
